FAERS Safety Report 20065504 (Version 2)
Quarter: 2021Q4

REPORT INFORMATION
  Report Type: Report from Study
  Country: US (occurrence: US)
  Receive Date: 20211113
  Receipt Date: 20211126
  Transmission Date: 20220303
  Serious: Yes (Other)
  Sender: FDA-Public Use
  Company Number: US-NOVARTISPH-NVSC2021US257617

PATIENT
  Sex: Male

DRUGS (5)
  1. LUTATHERA [Suspect]
     Active Substance: LUTETIUM OXODOTREOTIDE LU-177
     Indication: Product used for unknown indication
     Dosage: UNK
     Route: 065
  2. OCTREOTIDE [Suspect]
     Active Substance: OCTREOTIDE
     Indication: Product used for unknown indication
     Dosage: 20 MG, QMO
     Route: 065
     Dates: start: 20191007
  3. OCTREOTIDE [Suspect]
     Active Substance: OCTREOTIDE
  4. OCTREOTIDE [Suspect]
     Active Substance: OCTREOTIDE
  5. RESTORIL [Suspect]
     Active Substance: TEMAZEPAM
     Indication: Insomnia
     Dosage: 1 DF, PRN (1 CAPSULE AT BEDTIME)
     Route: 065

REACTIONS (4)
  - Metastases to liver [Unknown]
  - Metastases to bone [Unknown]
  - Prostate cancer [Unknown]
  - Blood glucose abnormal [Unknown]
